APPROVED DRUG PRODUCT: PRECEDEX
Active Ingredient: DEXMEDETOMIDINE HYDROCHLORIDE
Strength: EQ 200MCG BASE/2ML (EQ 100MCG BASE/ML)
Dosage Form/Route: INJECTABLE;INJECTION
Application: N021038 | Product #001 | TE Code: AP
Applicant: HOSPIRA INC
Approved: Dec 17, 1999 | RLD: Yes | RS: Yes | Type: RX